FAERS Safety Report 10474336 (Version 1)
Quarter: 2014Q3

REPORT INFORMATION
  Report Type: Report from Study
  Country: US (occurrence: US)
  Receive Date: 20140924
  Receipt Date: 20140924
  Transmission Date: 20150326
  Serious: Yes (Other)
  Sender: FDA-Public Use
  Company Number: US-SA-2014SA129226

PATIENT
  Sex: Male

DRUGS (3)
  1. LANTUS [Suspect]
     Active Substance: INSULIN GLARGINE
     Indication: DIABETES MELLITUS
     Dosage: DOSE:55 UNIT(S)
     Route: 065
  2. LANTUS [Suspect]
     Active Substance: INSULIN GLARGINE
     Indication: DIABETES MELLITUS
     Dosage: DOSE:45 UNIT(S)
     Route: 065
     Dates: start: 2014
  3. APIDRA [Suspect]
     Active Substance: INSULIN GLULISINE
     Indication: DIABETES MELLITUS
     Dosage: FREQUENCY: Q 4-5 HOURS DOSE:115 UNIT(S)
     Route: 065

REACTIONS (5)
  - Blood glucose increased [Recovered/Resolved]
  - Circulatory collapse [Recovered/Resolved]
  - Hand deformity [Recovered/Resolved]
  - Weight decreased [Recovered/Resolved]
  - Drug dose omission [Unknown]
